FAERS Safety Report 21653305 (Version 1)
Quarter: 2022Q4

REPORT INFORMATION
  Report Type: Spontaneous
  Country: US (occurrence: US)
  Receive Date: 20221128
  Receipt Date: 20221128
  Transmission Date: 20230112
  Serious: No
  Sender: FDA-Public Use
  Company Number: US-AMGEN-USASP2022202264

PATIENT
  Age: 74 Year
  Sex: Female

DRUGS (2)
  1. NPLATE [Suspect]
     Active Substance: ROMIPLOSTIM
     Indication: White blood cell count decreased
     Dosage: 50 MICROGRAM, QWK (AS NEEDED)
     Route: 058
     Dates: start: 20201207
  2. NPLATE [Suspect]
     Active Substance: ROMIPLOSTIM
     Indication: Off label use

REACTIONS (2)
  - Refusal of treatment by patient [Unknown]
  - Off label use [Unknown]

NARRATIVE: CASE EVENT DATE: 20201207
